FAERS Safety Report 20232806 (Version 3)
Quarter: 2022Q1

REPORT INFORMATION
  Report Type: Report from Study
  Country: US (occurrence: US)
  Receive Date: 20211227
  Receipt Date: 20220225
  Transmission Date: 20220423
  Serious: Yes (Hospitalization)
  Sender: FDA-Public Use
  Company Number: US-TAKEDA-2021TUS049847

PATIENT
  Sex: Male
  Weight: 15.873 kg

DRUGS (16)
  1. HUMAN IMMUNOGLOBULIN G [Suspect]
     Active Substance: HUMAN IMMUNOGLOBULIN G
     Indication: Transient hypogammaglobulinaemia of infancy
     Dosage: 2 GRAM, 1/WEEK
     Route: 058
     Dates: start: 20210806
  2. HUMAN IMMUNOGLOBULIN G [Suspect]
     Active Substance: HUMAN IMMUNOGLOBULIN G
     Dosage: 2 GRAM, Q2WEEKS
     Route: 058
     Dates: start: 20210806
  3. HEPATITIS A VIRUS STRAIN HM175 ANTIGEN (FORMALDEHYDE INACTIVATED) [Suspect]
     Active Substance: HEPATITIS A VIRUS STRAIN HM175 ANTIGEN (FORMALDEHYDE INACTIVATED)
     Indication: Immunisation
     Route: 065
  4. ACETAMINOPHEN [Concomitant]
     Active Substance: ACETAMINOPHEN
     Route: 065
  5. DIPHENHYDRAMINE [Concomitant]
     Active Substance: DIPHENHYDRAMINE
     Route: 065
  6. EPINEPHRINE [Concomitant]
     Active Substance: EPINEPHRINE
     Route: 065
  7. Lmx [Concomitant]
     Route: 065
  8. ALBUTEROL [Concomitant]
     Active Substance: ALBUTEROL
     Route: 065
  9. FLOVENT [Concomitant]
     Active Substance: FLUTICASONE PROPIONATE
     Route: 065
  10. VITAMIN D3 [Concomitant]
     Active Substance: CHOLECALCIFEROL
     Route: 065
  11. FLONASE [Concomitant]
     Active Substance: FLUTICASONE PROPIONATE
     Route: 065
  12. VITAMINS [Concomitant]
     Active Substance: VITAMINS
     Route: 065
  13. FLONASE SENSIMIST ALLERGY RELIEF [Concomitant]
     Active Substance: FLUTICASONE FUROATE
     Route: 065
  14. ALBUTEROL SULFATE [Concomitant]
     Active Substance: ALBUTEROL SULFATE
     Route: 065
  15. MUPIROCIN [Concomitant]
     Active Substance: MUPIROCIN
     Route: 065
  16. TACROLIMUS [Concomitant]
     Active Substance: TACROLIMUS
     Route: 065

REACTIONS (17)
  - Dehydration [Unknown]
  - Psychomotor hyperactivity [Unknown]
  - Foot fracture [Unknown]
  - Ear infection [Unknown]
  - Asthenia [Unknown]
  - Mouth swelling [Unknown]
  - Eye swelling [Unknown]
  - Rash [Unknown]
  - Cough [Unknown]
  - Nasal congestion [Unknown]
  - Infusion site pain [Unknown]
  - Infusion site extravasation [Unknown]
  - Decreased appetite [Unknown]
  - Abdominal pain [Unknown]
  - Injection site erythema [Unknown]
  - Headache [Unknown]
  - Urticaria [Unknown]
